FAERS Safety Report 19074069 (Version 2)
Quarter: 2023Q4

REPORT INFORMATION
  Report Type: Spontaneous
  Country: US (occurrence: None)
  Receive Date: 20210330
  Receipt Date: 20231222
  Transmission Date: 20240109
  Serious: Yes (Hospitalization, Other)
  Sender: FDA-Public Use
  Company Number: 2021A188176

PATIENT
  Age: 17065 Day
  Sex: Male
  Weight: 164.2 kg

DRUGS (37)
  1. FARXIGA [Suspect]
     Active Substance: DAPAGLIFLOZIN PROPANEDIOL
     Indication: Type 2 diabetes mellitus
     Route: 048
     Dates: start: 20141119
  2. FARXIGA [Suspect]
     Active Substance: DAPAGLIFLOZIN PROPANEDIOL
     Indication: Weight decreased
     Route: 048
     Dates: start: 20141119
  3. FARXIGA [Suspect]
     Active Substance: DAPAGLIFLOZIN PROPANEDIOL
     Indication: Blood pressure decreased
     Route: 048
     Dates: start: 20141119
  4. LISINOPRIL [Concomitant]
     Active Substance: LISINOPRIL
     Indication: Blood pressure abnormal
  5. JENTADUETO [Concomitant]
     Active Substance: LINAGLIPTIN\METFORMIN HYDROCHLORIDE
     Indication: Diabetes mellitus
  6. BYDUREON [Concomitant]
     Active Substance: EXENATIDE
  7. AMOXICILLIN [Concomitant]
     Active Substance: AMOXICILLIN
  8. AZITHROMYCIN [Concomitant]
     Active Substance: AZITHROMYCIN
     Indication: Blood cholesterol abnormal
  9. ATORVASTATIN [Concomitant]
     Active Substance: ATORVASTATIN
  10. TRAMADOL [Concomitant]
     Active Substance: TRAMADOL\TRAMADOL HYDROCHLORIDE
  11. LEVEMIR [Concomitant]
     Active Substance: INSULIN DETEMIR
  12. PHENYLEPHRINE [Concomitant]
     Active Substance: PHENYLEPHRINE HYDROCHLORIDE
  13. MORPHINE SULFATE [Concomitant]
     Active Substance: MORPHINE SULFATE
  14. SODIUM SULFATE [Concomitant]
     Active Substance: SODIUM SULFATE
  15. ONDANSETRON [Concomitant]
     Active Substance: ONDANSETRON
  16. PIPERACILLIN [Concomitant]
     Active Substance: PIPERACILLIN
  17. KETOROLAC [Concomitant]
     Active Substance: KETOROLAC TROMETHAMINE
  18. DEXTROSE [Concomitant]
     Active Substance: DEXTROSE\DEXTROSE MONOHYDRATE
  19. LEVOFLOXACIN [Concomitant]
     Active Substance: LEVOFLOXACIN
  20. MELATONIN [Concomitant]
     Active Substance: MELATONIN
  21. TYLENOL [Concomitant]
     Active Substance: ACETAMINOPHEN
  22. DURAPHEN [Concomitant]
     Active Substance: DEXTROMETHORPHAN HYDROBROMIDE\GUAIFENESIN\PHENYLEPHRINE HYDROCHLORIDE
  23. XOPENEX [Concomitant]
     Active Substance: LEVALBUTEROL HYDROCHLORIDE
  24. BENZONATATE [Concomitant]
     Active Substance: BENZONATATE
  25. MOXEZA [Concomitant]
     Active Substance: MOXIFLOXACIN HYDROCHLORIDE
  26. MONTELUKAST [Concomitant]
     Active Substance: MONTELUKAST SODIUM
  27. HUMALOG [Concomitant]
     Active Substance: INSULIN LISPRO
  28. LIPITOR [Concomitant]
     Active Substance: ATORVASTATIN CALCIUM
  29. ZESTRIL [Concomitant]
     Active Substance: LISINOPRIL
  30. LEVAQUIN [Concomitant]
     Active Substance: LEVOFLOXACIN
  31. ULTRAM [Concomitant]
     Active Substance: TRAMADOL HYDROCHLORIDE
  32. TRAMADOL [Concomitant]
     Active Substance: TRAMADOL\TRAMADOL HYDROCHLORIDE
  33. ROCEPHIN [Concomitant]
     Active Substance: CEFTRIAXONE SODIUM
  34. LOVENOX [Concomitant]
     Active Substance: ENOXAPARIN SODIUM
  35. ALBUTEROL [Concomitant]
     Active Substance: ALBUTEROL
  36. SINGULAIR [Concomitant]
     Active Substance: MONTELUKAST SODIUM
  37. ZITHROMAX [Concomitant]
     Active Substance: AZITHROMYCIN DIHYDRATE

REACTIONS (19)
  - Fournier^s gangrene [Unknown]
  - Scrotal abscess [Unknown]
  - Cellulitis [Unknown]
  - Perineal abscess [Unknown]
  - Groin abscess [Unknown]
  - Genital abscess [Unknown]
  - Anal abscess [Unknown]
  - Type 2 diabetes mellitus [Unknown]
  - Obesity [Unknown]
  - Inflammation [Unknown]
  - Essential hypertension [Unknown]
  - Hyperlipidaemia [Unknown]
  - Lumbar spinal stenosis [Unknown]
  - Groin pain [Unknown]
  - Hypertension [Unknown]
  - Abdominal pain lower [Unknown]
  - Erythema [Unknown]
  - Scrotal swelling [Unknown]
  - Rash [Unknown]

NARRATIVE: CASE EVENT DATE: 20170617
